FAERS Safety Report 6335109-9 (Version None)
Quarter: 2009Q3

REPORT INFORMATION
  Report Type: 
  Country: None (occurrence: None)
  Receive Date: 20090826
  Receipt Date: 20090811
  Transmission Date: 20100115
  Serious: Yes (Hospitalization)
  Sender: FDA-Public Use
  Company Number: IDA-00250

PATIENT
  Age: 33 Year
  Sex: Male

DRUGS (13)
  1. PROPRANOLOL [Suspect]
     Dosage: ORAL
     Route: 048
     Dates: start: 20090304, end: 20090306
  2. PERFALGAN (PARACETAMOL) [Suspect]
     Dosage: INTRAVENOUS
     Route: 042
     Dates: start: 20090305
  3. ISOSORBIDE DINITRATE [Suspect]
     Dosage: DOSE TEXT: 2MG/HOUR ORAL
     Route: 048
     Dates: start: 20090305, end: 20090306
  4. LEXOMIL (BROMAZEPAM) [Suspect]
     Dosage: ORAL
     Route: 048
     Dates: start: 20090304, end: 20090305
  5. HEPARIN [Suspect]
     Dosage: 22000 IU INTRAVENOUS
     Route: 042
     Dates: start: 20090304, end: 20090306
  6. REOPRO [Suspect]
     Dosage: INTRAVENOUS
     Route: 042
     Dates: start: 20090304, end: 20090304
  7. PERINDOPRIL ERBUMINE [Suspect]
     Dosage: 2 MG FORMULATION: TABLET
     Dates: start: 20090309, end: 20090313
  8. ASPEGIC /CH/ (ACETYLSALICYLATE LYSINE, AMINOACETIC ACID) [Concomitant]
  9. PLAVIX [Concomitant]
  10. ATORVASTATIN CALCIUM [Concomitant]
  11. ATARAX [Concomitant]
  12. BISOPROLOL FUMARATE [Concomitant]
  13. ZYRTEC [Concomitant]

REACTIONS (1)
  - THROMBOCYTOPENIA [None]
